FAERS Safety Report 18344182 (Version 1)
Quarter: 2020Q4

REPORT INFORMATION
  Report Type: Spontaneous
  Country: CN (occurrence: CN)
  Receive Date: 20201005
  Receipt Date: 20201005
  Transmission Date: 20210114
  Serious: Yes (Life-Threatening, Hospitalization, Other)
  Sender: FDA-Public Use
  Company Number: CN-BAXTER-2020BAX019971

PATIENT
  Age: 1 Year
  Sex: Male

DRUGS (8)
  1. OSONA [TOPOTECAN HYDROCHLORIDE] [Suspect]
     Active Substance: TOPOTECAN HYDROCHLORIDE
     Dosage: DOSE REINTRODUCED
     Route: 041
  2. ONDANSETRON HYDROCHLORIDE. [Suspect]
     Active Substance: ONDANSETRON HYDROCHLORIDE
     Dosage: DOSE REINTRODUCED
     Route: 041
  3. UROMITEXAN [Suspect]
     Active Substance: MESNA
     Dosage: DOSE REINTRODUCED
     Route: 041
  4. UROMITEXAN [Suspect]
     Active Substance: MESNA
     Indication: NEOPLASM MALIGNANT
     Route: 041
     Dates: start: 20200722, end: 20200723
  5. ONDANSETRON HYDROCHLORIDE. [Suspect]
     Active Substance: ONDANSETRON HYDROCHLORIDE
     Indication: NEOPLASM MALIGNANT
     Route: 041
     Dates: start: 20200722, end: 20200723
  6. ENDOXAN [Suspect]
     Active Substance: CYCLOPHOSPHAMIDE
     Dosage: DOSE REINTRODUCED
     Route: 041
  7. OSONA [TOPOTECAN HYDROCHLORIDE] [Suspect]
     Active Substance: TOPOTECAN HYDROCHLORIDE
     Indication: NEOPLASM MALIGNANT
     Route: 041
     Dates: start: 20200722, end: 20200723
  8. ENDOXAN [Suspect]
     Active Substance: CYCLOPHOSPHAMIDE
     Indication: NEOPLASM MALIGNANT
     Route: 041
     Dates: start: 20200722, end: 20200723

REACTIONS (2)
  - Pyrexia [Unknown]
  - Myelosuppression [Recovered/Resolved]

NARRATIVE: CASE EVENT DATE: 20200724
